FAERS Safety Report 4690101-5 (Version None)
Quarter: 2005Q2

REPORT INFORMATION
  Report Type: 
  Country: None (occurrence: None)
  Receive Date: 20050613
  Receipt Date: 20050531
  Transmission Date: 20051028
  Serious: Yes (Other)
  Sender: FDA-Public Use
  Company Number: HQWYE032031MAY05

PATIENT
  Age: 68 Year
  Sex: Female

DRUGS (7)
  1. VENLAFAXINE HCL [Suspect]
     Dosage: SEE IMAGE
     Route: 048
     Dates: start: 20050421, end: 20050423
  2. VENLAFAXINE HCL [Suspect]
     Dosage: SEE IMAGE
     Route: 048
     Dates: start: 20050424, end: 20050424
  3. CIPRALEX (ESCITALOPRAM, ) [Suspect]
     Dosage: 10 MG 1X PER 1 DAY
     Dates: start: 20050414, end: 20050420
  4. TEGRETOL [Suspect]
     Dosage: 200 MG 1X PER 1 DAY ORAL
     Route: 048
     Dates: start: 20050405, end: 20050419
  5. TEGRETOL [Suspect]
     Dosage: 400 MG 1X PER 1 DAY ORAL
     Route: 048
     Dates: start: 20050420, end: 20050424
  6. SELOKEEN (METOPROLOL TARTRATE) [Concomitant]
  7. ASPIRIN [Concomitant]

REACTIONS (8)
  - CONDITION AGGRAVATED [None]
  - DISORIENTATION [None]
  - DRUG INTERACTION [None]
  - HYPONATRAEMIA [None]
  - NAUSEA [None]
  - NO REACTION ON PREVIOUS EXPOSURE TO DRUG [None]
  - PSYCHIATRIC SYMPTOM [None]
  - VOMITING [None]
